FAERS Safety Report 12197422 (Version 1)
Quarter: 2016Q1

REPORT INFORMATION
  Report Type: Report from Study
  Country: CN (occurrence: CN)
  Receive Date: 20160322
  Receipt Date: 20160322
  Transmission Date: 20160526
  Serious: Yes (Other)
  Sender: FDA-Public Use
  Company Number: CN-ROCHE-1728760

PATIENT

DRUGS (5)
  1. IRINOTECAN [Suspect]
     Active Substance: IRINOTECAN
     Indication: RECTAL CANCER
     Dosage: 50 TO 70MG/M2
     Route: 042
  2. CAPECITABINE. [Suspect]
     Active Substance: CAPECITABINE
     Dosage: FOR 5 DAYS PER WEEK.
     Route: 048
  3. CAPECITABINE. [Suspect]
     Active Substance: CAPECITABINE
     Indication: RECTAL CANCER
     Dosage: 5 DAYS PER WEEK DURING THE COURSE OF IRRADIATION
     Route: 048
  4. 5-FLUOROURACIL [Suspect]
     Active Substance: FLUOROURACIL
     Indication: RECTAL CANCER
     Dosage: 5 DAYS PER WEEK DURING THE COURSE OF IRRADIATION
     Route: 065
  5. OXALIPLATIN. [Suspect]
     Active Substance: OXALIPLATIN
     Indication: RECTAL CANCER
     Dosage: 2-HOUR INTRAVENOUS INFUSION ONCE A WEEK
     Route: 042

REACTIONS (5)
  - Dermatitis [Unknown]
  - Anal incontinence [Unknown]
  - Vomiting [Unknown]
  - Diarrhoea [Unknown]
  - Haematotoxicity [Unknown]
